FAERS Safety Report 12136327 (Version 1)
Quarter: 2016Q1

REPORT INFORMATION
  Report Type: Spontaneous
  Country: US (occurrence: US)
  Receive Date: 20160302
  Receipt Date: 20160302
  Transmission Date: 20160526
  Serious: No
  Sender: FDA-Public Use
  Company Number: US-PFIZER INC-2016066161

PATIENT
  Sex: Male
  Weight: 107 kg

DRUGS (1)
  1. TIKOSYN [Suspect]
     Active Substance: DOFETILIDE
     Indication: ATRIAL FIBRILLATION
     Dosage: 250 MICROGRAMS, EVERY 12 HOURS
     Route: 048

REACTIONS (1)
  - Laryngitis [Recovering/Resolving]
